FAERS Safety Report 17446148 (Version 6)
Quarter: 2020Q4

REPORT INFORMATION
  Report Type: Spontaneous
  Country: US (occurrence: US)
  Receive Date: 20200221
  Receipt Date: 20201214
  Transmission Date: 20210113
  Serious: No
  Sender: FDA-Public Use
  Company Number: US-SA-2020SA042328

PATIENT

DRUGS (2)
  1. SUDAFED [XYLOMETAZOLINE HYDROCHLORIDE] [Concomitant]
     Active Substance: XYLOMETAZOLINE HYDROCHLORIDE
  2. DUPIXENT [Suspect]
     Active Substance: DUPILUMAB
     Indication: DERMATITIS ATOPIC
     Dosage: 300 MG, QOW
     Route: 058
     Dates: start: 20191213

REACTIONS (12)
  - Contusion [Unknown]
  - Rash pustular [Unknown]
  - Product storage error [Unknown]
  - Skin ulcer [Unknown]
  - Product dose omission issue [Unknown]
  - Illness [Unknown]
  - Rash [Recovering/Resolving]
  - Dermatitis atopic [Unknown]
  - Pain [Unknown]
  - Alopecia [Unknown]
  - Malaise [Unknown]
  - Pruritus [Recovering/Resolving]

NARRATIVE: CASE EVENT DATE: 2020
